FAERS Safety Report 6314679-0 (Version None)
Quarter: 2009Q3

REPORT INFORMATION
  Report Type: 
  Country: None (occurrence: None)
  Receive Date: 20090819
  Receipt Date: 20090813
  Transmission Date: 20100115
  Serious: Yes (Life-Threatening)
  Sender: FDA-Public Use
  Company Number: HK-AVENTIS-200914845EU

PATIENT
  Age: 89 Year
  Sex: Male

DRUGS (4)
  1. NATRILIX                           /00340101/ [Suspect]
     Indication: SUICIDE ATTEMPT
     Route: 048
  2. THEOPHYL-SR [Suspect]
     Indication: SUICIDE ATTEMPT
  3. METHYLDOPA [Suspect]
     Indication: SUICIDE ATTEMPT
     Route: 048
  4. ACETAMINOPHEN [Concomitant]

REACTIONS (7)
  - BRADYCARDIA [None]
  - DRUG INTERACTION [None]
  - HYPOKALAEMIA [None]
  - HYPOTENSION [None]
  - MULTIPLE DRUG OVERDOSE INTENTIONAL [None]
  - POLYURIA [None]
  - SOMNOLENCE [None]
